FAERS Safety Report 5001277-4 (Version None)
Quarter: 2006Q1

REPORT INFORMATION
  Report Type: 
  Country: None (occurrence: None)
  Receive Date: 20060315
  Receipt Date: 20060203
  Transmission Date: 20060701
  Serious: Yes (Hospitalization)
  Sender: FDA-Public Use
  Company Number: 435106

PATIENT
  Age: 58 Year
  Sex: Female

DRUGS (12)
  1. BONIVA [Suspect]
     Indication: OSTEOPOROSIS
     Dosage: 150 MG 1 PER MONTH ORAL
     Route: 048
     Dates: start: 20050815, end: 20051115
  2. GLUCOPHAGE [Concomitant]
  3. HUMULIN (BIPHASIC ISOPHANE INSULIN) [Concomitant]
  4. PRINIVIL [Concomitant]
  5. TOPROL-XL [Concomitant]
  6. EFFEXOR XR [Concomitant]
  7. NEXIUM [Concomitant]
  8. SYNTHROID [Concomitant]
  9. TRICOR [Concomitant]
  10. ZOCOR [Concomitant]
  11. ZYRTEC [Concomitant]
  12. ULTRACET [Concomitant]

REACTIONS (2)
  - CHEST PAIN [None]
  - VOMITING [None]
